FAERS Safety Report 16705303 (Version 1)
Quarter: 2019Q3

REPORT INFORMATION
  Report Type: Report from Study
  Country: None (occurrence: CO)
  Receive Date: 20190815
  Receipt Date: 20190815
  Transmission Date: 20191004
  Serious: Yes (Hospitalization)
  Sender: FDA-Public Use
  Company Number: CO-ABBVIE-19K-036-2889843-00

PATIENT
  Age: 5 Month
  Sex: Female

DRUGS (1)
  1. SYNAGIS [Suspect]
     Active Substance: PALIVIZUMAB
     Indication: BRONCHOPULMONARY DYSPLASIA
     Route: 030
     Dates: start: 20190312, end: 20190712

REACTIONS (1)
  - Bronchiolitis [Recovering/Resolving]

NARRATIVE: CASE EVENT DATE: 20190809
